FAERS Safety Report 26092038 (Version 1)
Quarter: 2025Q4

REPORT INFORMATION
  Report Type: Spontaneous
  Country: JP (occurrence: JP)
  Receive Date: 20251126
  Receipt Date: 20251126
  Transmission Date: 20260117
  Serious: Yes (Other)
  Sender: MERCK SHARP & DOHME LLC
  Company Number: JP-009507513-2352442

PATIENT
  Age: 8 Decade
  Sex: Male

DRUGS (3)
  1. KEYTRUDA [Suspect]
     Active Substance: PEMBROLIZUMAB
     Indication: Metastatic renal cell carcinoma
     Route: 065
  2. LENVATINIB MESYLATE [Suspect]
     Active Substance: LENVATINIB MESYLATE
     Indication: Metastatic renal cell carcinoma
     Route: 048
  3. LENVATINIB MESYLATE [Suspect]
     Active Substance: LENVATINIB MESYLATE
     Indication: Metastatic renal cell carcinoma
     Dosage: REDUCED
     Route: 048

REACTIONS (5)
  - Neuropathy peripheral [Unknown]
  - Hypertension [Unknown]
  - Decreased appetite [Unknown]
  - Therapy partial responder [Unknown]
  - Dysphonia [Unknown]
